FAERS Safety Report 7521126-X (Version None)
Quarter: 2011Q2

REPORT INFORMATION
  Report Type: 
  Country: None (occurrence: None)
  Receive Date: 20110524
  Receipt Date: 20110511
  Transmission Date: 20111010
  Serious: Yes (Death)
  Sender: FDA-Public Use
  Company Number: JPI-P-014773

PATIENT
  Sex: Female

DRUGS (3)
  1. XYREM [Suspect]
     Indication: PRODUCT USED FOR UNKNOWN INDICATION
     Dosage: 4.5GM (2.25 GM, 2 IN  1 D),ORAL, 6 GM (3 GM,2 IN 1 D),ORAL,7.5 GM (3.75 GM,2 IN 1 D),ORAL
     Route: 048
     Dates: start: 20021205, end: 20030201
  2. XYREM [Suspect]
     Indication: PRODUCT USED FOR UNKNOWN INDICATION
     Dosage: 4.5GM (2.25 GM, 2 IN  1 D),ORAL, 6 GM (3 GM,2 IN 1 D),ORAL,7.5 GM (3.75 GM,2 IN 1 D),ORAL
     Route: 048
     Dates: start: 20030221, end: 20031201
  3. XYREM [Suspect]
     Indication: PRODUCT USED FOR UNKNOWN INDICATION
     Dosage: 4.5GM (2.25 GM, 2 IN  1 D),ORAL, 6 GM (3 GM,2 IN 1 D),ORAL,7.5 GM (3.75 GM,2 IN 1 D),ORAL
     Route: 048
     Dates: start: 20031202, end: 20040122

REACTIONS (1)
  - DEATH [None]
